FAERS Safety Report 7539785-4 (Version None)
Quarter: 2011Q2

REPORT INFORMATION
  Report Type: 
  Country: None (occurrence: None)
  Receive Date: 20110610
  Receipt Date: 20110531
  Transmission Date: 20111010
  Serious: Yes (Other)
  Sender: FDA-Public Use
  Company Number: PHHY2011US48086

PATIENT
  Sex: Male

DRUGS (13)
  1. MINERALS NOS [Concomitant]
  2. CALCIUM CARBONATE [Concomitant]
  3. MAGNESIUM SULFATE [Concomitant]
  4. FLOMAX [Concomitant]
  5. RECLAST [Suspect]
     Indication: OSTEOPOROSIS
     Dosage: 5 MG
     Route: 042
     Dates: start: 20110527
  6. PRILOSEC [Concomitant]
     Dosage: 20 MG, QD
     Route: 048
  7. ARICEPT [Concomitant]
     Dosage: 10 MG, QD
     Route: 048
  8. VITAMIN B [Concomitant]
  9. TAMSULOSIN HCL [Concomitant]
     Dosage: 0.4 MG, QD
     Route: 048
  10. ASCORBIC ACID [Concomitant]
  11. VITAMIN D [Concomitant]
  12. NORVASC [Concomitant]
     Dosage: 10 MG, QD
     Route: 048
  13. CYMBALTA [Concomitant]
     Dosage: 60 MG, QD
     Route: 048

REACTIONS (3)
  - DEMENTIA [None]
  - HALLUCINATION, VISUAL [None]
  - CONFUSIONAL STATE [None]
